FAERS Safety Report 7844299-8 (Version None)
Quarter: 2011Q4

REPORT INFORMATION
  Report Type: 
  Country: None (occurrence: None)
  Receive Date: 20111025
  Receipt Date: 20111013
  Transmission Date: 20120403
  Serious: Yes (Death, Hospitalization)
  Sender: FDA-Public Use
  Company Number: IE-SANOFI-AVENTIS-2011SA067252

PATIENT
  Age: 78 Year
  Sex: Male

DRUGS (7)
  1. METRONIDAZOLE [Suspect]
     Route: 065
     Dates: start: 20090522, end: 20090615
  2. RIFADIN [Suspect]
     Indication: BACTERIAL INFECTION
     Route: 048
     Dates: start: 20090522, end: 20090527
  3. SEROQUEL [Suspect]
     Indication: PSYCHOTIC DISORDER
     Route: 048
     Dates: start: 20090403, end: 20090615
  4. ESOMEPRAZOLE SODIUM [Suspect]
     Indication: DUODENAL ULCER
     Route: 048
     Dates: start: 20090403, end: 20090615
  5. FUSIDIC ACID [Suspect]
     Route: 048
     Dates: start: 20090522, end: 20090615
  6. LEXAPRO [Suspect]
     Indication: DEPRESSION
     Route: 048
     Dates: start: 20090403, end: 20090615
  7. AUGMENTIN [Suspect]
     Indication: BACTERIAL INFECTION
     Route: 065
     Dates: start: 20090527, end: 20090615

REACTIONS (4)
  - VOMITING [None]
  - HEPATITIS [None]
  - JAUNDICE [None]
  - ACUTE HEPATIC FAILURE [None]
